FAERS Safety Report 8118403-0 (Version None)
Quarter: 2012Q1

REPORT INFORMATION
  Report Type: 
  Country: None (occurrence: None)
  Receive Date: 20120207
  Receipt Date: 20120127
  Transmission Date: 20120608
  Serious: Yes (Hospitalization)
  Sender: FDA-Public Use
  Company Number: FR-SANOFI-AVENTIS-2012SA006499

PATIENT
  Age: 86 Year
  Sex: Female

DRUGS (8)
  1. INDAPAMIDE [Suspect]
     Indication: PRODUCT USED FOR UNKNOWN INDICATION
     Route: 048
     Dates: start: 20101201, end: 20111102
  2. LERCANIDIPINE [Concomitant]
  3. ACETAMINOPHEN [Concomitant]
  4. LORAZEPAM [Concomitant]
  5. DEROXAT [Suspect]
     Indication: PRODUCT USED FOR UNKNOWN INDICATION
     Route: 048
     Dates: start: 20111024, end: 20111102
  6. DICLOFENAC SODIUM [Concomitant]
     Dates: end: 20111102
  7. FEMARA [Concomitant]
  8. AMLODIPINE BESYLATE [Concomitant]

REACTIONS (7)
  - FALL [None]
  - HYPOKALAEMIA [None]
  - DISORIENTATION [None]
  - HYPONATRAEMIA [None]
  - GENERAL PHYSICAL HEALTH DETERIORATION [None]
  - CHEST PAIN [None]
  - HAEMATOMA [None]
